FAERS Safety Report 4568754-1 (Version None)
Quarter: 2005Q1

REPORT INFORMATION
  Report Type: 
  Country: None (occurrence: None)
  Receive Date: 20050202
  Receipt Date: 20050126
  Transmission Date: 20050727
  Serious: Yes (Other)
  Sender: FDA-Public Use
  Company Number: DE-MERCK-0501DEU00260

PATIENT
  Age: 77 Year
  Sex: Female
  Weight: 60 kg

DRUGS (2)
  1. VIOXX [Suspect]
     Indication: POLYARTHRITIS
     Route: 048
     Dates: start: 20040101, end: 20040601
  2. VIOXX [Suspect]
     Route: 048
     Dates: start: 20040601

REACTIONS (1)
  - OPTIC NERVE INFARCTION [None]
